FAERS Safety Report 13302811 (Version 2)
Quarter: 2017Q1

REPORT INFORMATION
  Report Type: Spontaneous
  Country: CA (occurrence: CA)
  Receive Date: 20170307
  Receipt Date: 20170307
  Transmission Date: 20170428
  Serious: Yes (Disabling, Other)
  Sender: FDA-Public Use
  Company Number: CA-ASCEND THERAPEUTICS-1063916

PATIENT
  Age: 46 Year
  Sex: Female

DRUGS (1)
  1. ESTROGEL [Suspect]
     Active Substance: ESTRADIOL
     Indication: HORMONE REPLACEMENT THERAPY
     Dates: start: 20161025, end: 20170122

REACTIONS (6)
  - Breast pain [Recovered/Resolved]
  - Abdominal pain upper [Recovered/Resolved]
  - Loss of libido [Recovered/Resolved]
  - Eye complication associated with device [Recovered/Resolved]
  - Nausea [Recovered/Resolved]
  - Haemorrhage [Recovered/Resolved]
